FAERS Safety Report 7935898-3 (Version None)
Quarter: 2011Q4

REPORT INFORMATION
  Report Type: 
  Country: None (occurrence: None)
  Receive Date: 20111121
  Receipt Date: 20111104
  Transmission Date: 20120403
  Serious: Yes (Life-Threatening, Other)
  Sender: FDA-Public Use
  Company Number: COL_10237_2011

PATIENT
  Age: 59 Year
  Sex: Female

DRUGS (2)
  1. COLGATE PERIOGARD 0.2 % OROMUCOSAL SOLUTION (CHLORHEXIDINE DIGLUCONATE [Suspect]
     Indication: ALVEOLAR OSTEITIS
     Dosage: 10 ML, ORAL
     Route: 048
     Dates: start: 20111019, end: 20111019
  2. FLUOXETINE [Concomitant]

REACTIONS (1)
  - ANAPHYLACTIC REACTION [None]
